FAERS Safety Report 15470365 (Version 1)
Quarter: 2018Q4

REPORT INFORMATION
  Report Type: Spontaneous
  Country: JP (occurrence: JP)
  Receive Date: 20181005
  Receipt Date: 20181005
  Transmission Date: 20190205
  Serious: Yes (Other)
  Sender: FDA-Public Use
  Company Number: JP-009507513-1810JPN000305J

PATIENT
  Age: 70 Year
  Sex: Male

DRUGS (1)
  1. DESALEX TABLETS 5MG [Suspect]
     Active Substance: DESLORATADINE
     Indication: RHINITIS ALLERGIC
     Dosage: 5 MG, QD
     Route: 048
     Dates: start: 201808

REACTIONS (1)
  - Urinary retention [Recovered/Resolved]

NARRATIVE: CASE EVENT DATE: 201808
